FAERS Safety Report 20143320 (Version 2)
Quarter: 2021Q4

REPORT INFORMATION
  Report Type: Spontaneous
  Country: DE (occurrence: DE)
  Receive Date: 20211203
  Receipt Date: 20211224
  Transmission Date: 20220303
  Serious: Yes (Hospitalization, Other)
  Sender: FDA-Public Use
  Company Number: None

PATIENT
  Age: 83 Year
  Sex: Female
  Weight: 69 kg

DRUGS (24)
  1. CITALOPRAM [Suspect]
     Active Substance: CITALOPRAM HYDROBROMIDE
     Indication: Depression
     Dosage: 1-0-0-0
     Route: 048
  2. CITALOPRAM [Suspect]
     Active Substance: CITALOPRAM HYDROBROMIDE
     Dosage: DOSE INCREASED TO 30 MG (1, 1/2)
     Route: 048
  3. FENTANYL [Suspect]
     Active Substance: FENTANYL
     Indication: Scoliosis
     Dosage: 25 MICROG/H CHANGE EVERY 3 DAYS (25 MICROG/H ALLE 3 TAGE WECHSELN)?FENTANYL PFLASTER 25 MICROGRAM/H
     Route: 062
     Dates: end: 202111
  4. FENTANYL [Suspect]
     Active Substance: FENTANYL
     Dosage: 12.5 MICROG/H CHANGE EVERY 3 DAYS (12.5 MICROG/H ALLE 3 TAGE WECHSELN)?FENTANYL PFLASTER 25 MICROGRA
     Route: 062
     Dates: start: 20211119
  5. QUETIAPINE [Suspect]
     Active Substance: QUETIAPINE
     Indication: Depression
     Route: 048
     Dates: end: 20211119
  6. MIRTAZAPINE [Suspect]
     Active Substance: MIRTAZAPINE
     Indication: Depression
     Dosage: (0-0-0-2)
     Route: 048
  7. MIRTAZAPINE [Suspect]
     Active Substance: MIRTAZAPINE
     Dosage: AB NOVEMBER 2021 AUF 45MG ZUR NACHT ERHOEHT?INCREASED TO 45MG AT NIGHT AS OF NOVEMBER 2021
     Route: 048
  8. PANTOPRAZOLE [Concomitant]
     Active Substance: PANTOPRAZOLE
     Indication: Product used for unknown indication
     Dosage: 2-0-0
  9. PANTOPRAZOLE [Concomitant]
     Active Substance: PANTOPRAZOLE
     Dosage: DOSE REDUCED TO 20 MILLIGRAM 1 TABLET (1 TABLETTE)
  10. FUROSEMIDE [Concomitant]
     Active Substance: FUROSEMIDE
     Indication: Product used for unknown indication
     Dosage: 1/2-0-0 (BEI OEDEMEN IN DEN BEINEN ZUSAETZLICH 1/2 TABLETTE EINNEHMEN)?1/2-0-0 (FOR OEDEMA IN THE LE
  11. Alendronsaeure Aurobindo 70 mg [Concomitant]
     Indication: Product used for unknown indication
     Dosage: 1X WOECHENTLICH SAMSTAGS?1X A WEEK SATURDAYS
  12. CLOPIDOGREL [Concomitant]
     Active Substance: CLOPIDOGREL BISULFATE
     Indication: Coronary artery disease
     Dosage: 0.5-0-0
     Route: 048
     Dates: start: 202106
  13. CLOPIDOGREL [Concomitant]
     Active Substance: CLOPIDOGREL BISULFATE
     Indication: Coronary arterial stent insertion
  14. ASPIRIN [Concomitant]
     Active Substance: ASPIRIN
     Indication: Product used for unknown indication
     Dosage: 0-1-0
  15. Brimonidin 2mg/ml Augentropfen [Concomitant]
     Indication: Product used for unknown indication
     Dosage: 1-0-1 BOTH EYES, 5 MIN. AFTER BRINZO (1-0-1 BEIDE AUGEN, 5 MIN. NACH BRINZO)
  16. NITROGLYCERIN [Concomitant]
     Active Substance: NITROGLYCERIN
     Indication: Chest discomfort
  17. Amlodipin/Valsartan 5 mg/160mg [Concomitant]
     Indication: Product used for unknown indication
     Dosage: 1-0-1
  18. Vigantol 1000IE Vit.D3 [Concomitant]
     Indication: Product used for unknown indication
     Dosage: 0-0-1-0
  19. NEBIVOLOL [Concomitant]
     Active Substance: NEBIVOLOL
     Indication: Coronary arterial stent insertion
     Dosage: 1/4-0-0
  20. Duotrav 40 Mikro/ml + 5 mg/ml Augentropfen [Concomitant]
     Indication: Product used for unknown indication
     Dosage: 0-0-1 BOTH EYES, 5 MIN AFTER BRIMONIDINE (0-0-1 BEIDE AUGEN, 5 MIN. NACH BRIMONIDIN) 40 MICRO/ML + 5
  21. ATORVASTATIN [Concomitant]
     Active Substance: ATORVASTATIN
     Indication: Product used for unknown indication
  22. Brinzo Vision 10mg/ml Augentropfen [Concomitant]
     Indication: Product used for unknown indication
     Dosage: 1-0-1 BOTH EYES (1-0-1 BEIDE AUGEN).
  23. Jodid 200 Mikrogramm [Concomitant]
     Indication: Product used for unknown indication
     Dosage: 1-0-0
  24. Kalinor 600 mg [Concomitant]
     Indication: Product used for unknown indication
     Dosage: 1-0-1-0 FROM 19.11.2021 FIRST TBL. SET FROM MORNING TO NOON (1-0-1-0 AB 19.11.2021 ERSTE TABL. VON M
     Dates: start: 20211119

REACTIONS (16)
  - Blood pressure fluctuation [Recovering/Resolving]
  - Cholestasis [Recovering/Resolving]
  - Constipation [Recovering/Resolving]
  - Chills [Not Recovered/Not Resolved]
  - Gait disturbance [Recovering/Resolving]
  - Cholestasis [Recovering/Resolving]
  - Feeling cold [Recovering/Resolving]
  - Hepatocellular injury [Recovering/Resolving]
  - Urinary tract infection [Recovering/Resolving]
  - Hypotonia [Recovering/Resolving]
  - Night sweats [Not Recovered/Not Resolved]
  - General physical health deterioration [Recovering/Resolving]
  - Weight decreased [Recovering/Resolving]
  - Decreased appetite [Recovering/Resolving]
  - Dry eye [Recovering/Resolving]
  - Dry mouth [Recovering/Resolving]

NARRATIVE: CASE EVENT DATE: 20210101
